FAERS Safety Report 18757392 (Version 2)
Quarter: 2022Q2

REPORT INFORMATION
  Report Type: Spontaneous
  Country: BG (occurrence: None)
  Receive Date: 20210119
  Receipt Date: 20220504
  Transmission Date: 20220721
  Serious: Yes (Other)
  Sender: FDA-Public Use
  Company Number: 2021A009187

PATIENT
  Sex: Female

DRUGS (1)
  1. FASENRA [Suspect]
     Active Substance: BENRALIZUMAB
     Dosage: 30.0MG UNKNOWN
     Route: 058

REACTIONS (2)
  - COVID-19 [Unknown]
  - Rash [Unknown]
